FAERS Safety Report 24580177 (Version 1)
Quarter: 2024Q4

REPORT INFORMATION
  Report Type: Report from Study
  Country: BE (occurrence: BE)
  Receive Date: 20241105
  Receipt Date: 20241105
  Transmission Date: 20250115
  Serious: Yes (Hospitalization, Other)
  Sender: ALEXION PHARMACEUTICALS
  Company Number: None

PATIENT
  Age: 85 Year

DRUGS (240)
  1. DAPAGLIFLOZIN [Suspect]
     Active Substance: DAPAGLIFLOZIN
     Indication: Cardiac failure
     Dosage: 10 MG, QD
  2. DAPAGLIFLOZIN [Suspect]
     Active Substance: DAPAGLIFLOZIN
     Indication: Cardiac failure
     Dosage: 10 MG, QD
  3. DAPAGLIFLOZIN [Suspect]
     Active Substance: DAPAGLIFLOZIN
     Dosage: 10 MG, QD
  4. DAPAGLIFLOZIN [Suspect]
     Active Substance: DAPAGLIFLOZIN
     Dosage: 10 MG, QD
  5. DAPAGLIFLOZIN [Suspect]
     Active Substance: DAPAGLIFLOZIN
     Dosage: 10 MG, QD
  6. DAPAGLIFLOZIN [Suspect]
     Active Substance: DAPAGLIFLOZIN
     Dosage: 10 MG, QD
  7. DAPAGLIFLOZIN [Suspect]
     Active Substance: DAPAGLIFLOZIN
     Dosage: 10 MG, QD
  8. DAPAGLIFLOZIN [Suspect]
     Active Substance: DAPAGLIFLOZIN
     Dosage: 10 MG, QD
  9. AMIODARONE [Suspect]
     Active Substance: AMIODARONE
     Dosage: 200 MG, QD
  10. AMIODARONE [Suspect]
     Active Substance: AMIODARONE
     Dosage: 200 MG, QD
  11. AMIODARONE [Suspect]
     Active Substance: AMIODARONE
     Dosage: 200 MG, QD
  12. AMIODARONE [Suspect]
     Active Substance: AMIODARONE
     Dosage: 200 MG, QD
  13. DARBEPOETIN ALFA [Concomitant]
     Active Substance: DARBEPOETIN ALFA
     Indication: Product used for unknown indication
     Dosage: 40 UG, Q2W
  14. DARBEPOETIN ALFA [Concomitant]
     Active Substance: DARBEPOETIN ALFA
     Dosage: 40 UG, Q2W
  15. DARBEPOETIN ALFA [Concomitant]
     Active Substance: DARBEPOETIN ALFA
     Dosage: UNK
     Route: 065
  16. DARBEPOETIN ALFA [Concomitant]
     Active Substance: DARBEPOETIN ALFA
     Dosage: UNK
  17. DARBEPOETIN ALFA [Concomitant]
     Active Substance: DARBEPOETIN ALFA
     Dosage: 40 UG, Q2W
  18. DARBEPOETIN ALFA [Concomitant]
     Active Substance: DARBEPOETIN ALFA
     Dosage: 40 UG, Q2W
  19. EDOXABAN [Suspect]
     Active Substance: EDOXABAN
     Indication: Thrombosis prophylaxis
     Dosage: 30 MG, QD(0.5 DF, TWICE DAILY (24/26 MG 0.5 TABLET)
  20. EDOXABAN [Suspect]
     Active Substance: EDOXABAN
     Dosage: 30 MG, QD(0.5 DF, TWICE DAILY (24/26 MG 0.5 TABLET)
  21. FENOTEROL HYDROBROMIDE [Concomitant]
     Active Substance: FENOTEROL HYDROBROMIDE
     Indication: Pneumonia
     Dosage: UNK, 4 TIMES DAILY ((50/20 UG PER DOSE (0.1 UNIT) FOUR TIMES DAILY (QID))
  22. FENOTEROL HYDROBROMIDE [Concomitant]
     Active Substance: FENOTEROL HYDROBROMIDE
     Dosage: UNK, 4 TIMES DAILY ((50/20 UG PER DOSE (0.1 UNIT) FOUR TIMES DAILY (QID))
  23. FENOTEROL HYDROBROMIDE [Concomitant]
     Active Substance: FENOTEROL HYDROBROMIDE
     Dosage: UNK, 4 TIMES DAILY ((50/20 UG PER DOSE (0.1 UNIT) FOUR TIMES DAILY (QID))
  24. FENOTEROL HYDROBROMIDE [Concomitant]
     Active Substance: FENOTEROL HYDROBROMIDE
     Dosage: UNK, 4 TIMES DAILY ((50/20 UG PER DOSE (0.1 UNIT) FOUR TIMES DAILY (QID))
  25. FENOTEROL HYDROBROMIDE [Concomitant]
     Active Substance: FENOTEROL HYDROBROMIDE
     Dosage: UNK, 4 TIMES DAILY ((50/20 UG PER DOSE (0.1 UNIT) FOUR TIMES DAILY (QID)) ROUTE OF ADMIN (FREE TEXT)
  26. FENOTEROL HYDROBROMIDE [Concomitant]
     Active Substance: FENOTEROL HYDROBROMIDE
     Dosage: UNK, 4 TIMES DAILY ((50/20 UG PER DOSE (0.1 UNIT) FOUR TIMES DAILY (QID)) ROUTE OF ADMIN (FREE TEXT)
  27. FENOTEROL HYDROBROMIDE [Concomitant]
     Active Substance: FENOTEROL HYDROBROMIDE
     Dosage: UNK, 4 TIMES DAILY ((50/20 UG PER DOSE (0.1 UNIT) FOUR TIMES DAILY (QID)) ROUTE OF ADMIN (FREE TEXT)
  28. FENOTEROL HYDROBROMIDE [Concomitant]
     Active Substance: FENOTEROL HYDROBROMIDE
     Dosage: UNK, 4 TIMES DAILY ((50/20 UG PER DOSE (0.1 UNIT) FOUR TIMES DAILY (QID)) ROUTE OF ADMIN (FREE TEXT)
  29. ENTRESTO [Suspect]
     Active Substance: SACUBITRIL\VALSARTAN
     Indication: Cardiac failure
     Dosage: 1 DF
  30. ENTRESTO [Suspect]
     Active Substance: SACUBITRIL\VALSARTAN
     Indication: Cardiac failure
     Dosage: 1 DF
  31. ENTRESTO [Suspect]
     Active Substance: SACUBITRIL\VALSARTAN
     Dosage: 1 DF
  32. ENTRESTO [Suspect]
     Active Substance: SACUBITRIL\VALSARTAN
     Dosage: 1 DF
  33. ENTRESTO [Suspect]
     Active Substance: SACUBITRIL\VALSARTAN
     Dosage: 0.5 DF, BID; 24/26 MG 0.5 TABLET TWICE DAILY (BID) PO
  34. ENTRESTO [Suspect]
     Active Substance: SACUBITRIL\VALSARTAN
     Dosage: 0.5 DF, BID; 24/26 MG 0.5 TABLET TWICE DAILY (BID) PO
  35. ENTRESTO [Suspect]
     Active Substance: SACUBITRIL\VALSARTAN
     Dosage: 0.5 DF, BID; 24/26 MG 0.5 TABLET TWICE DAILY (BID) PO
  36. ENTRESTO [Suspect]
     Active Substance: SACUBITRIL\VALSARTAN
     Dosage: 0.5 DF, BID; 24/26 MG 0.5 TABLET TWICE DAILY (BID) PO
  37. ENTRESTO [Suspect]
     Active Substance: SACUBITRIL\VALSARTAN
     Dosage: 0.5 DF, BID; 24/26 MG 0.5 TABLET TWICE DAILY (BID) PO
     Route: 065
  38. ENTRESTO [Suspect]
     Active Substance: SACUBITRIL\VALSARTAN
     Dosage: 0.5 DF, BID; 24/26 MG 0.5 TABLET TWICE DAILY (BID) PO
  39. ENTRESTO [Suspect]
     Active Substance: SACUBITRIL\VALSARTAN
     Dosage: 0.5 DF, BID; 24/26 MG 0.5 TABLET TWICE DAILY (BID) PO
  40. ENTRESTO [Suspect]
     Active Substance: SACUBITRIL\VALSARTAN
     Dosage: 0.5 DF, BID; 24/26 MG 0.5 TABLET TWICE DAILY (BID) PO
     Route: 065
  41. ENOXAPARIN SODIUM [Concomitant]
     Active Substance: ENOXAPARIN SODIUM
     Indication: Thrombosis
     Dosage: 40 MG, Q6H
  42. ENOXAPARIN SODIUM [Concomitant]
     Active Substance: ENOXAPARIN SODIUM
     Dosage: 40 MG, Q6H
  43. ENOXAPARIN SODIUM [Concomitant]
     Active Substance: ENOXAPARIN SODIUM
     Dosage: 40 MG, Q6H
  44. ENOXAPARIN SODIUM [Concomitant]
     Active Substance: ENOXAPARIN SODIUM
     Dosage: 40 MG, Q6H
  45. TAMSULOSIN HYDROCHLORIDE [Suspect]
     Active Substance: TAMSULOSIN HYDROCHLORIDE
     Indication: Benign prostatic hyperplasia
     Dosage: 0.4 MG, QD
  46. TAMSULOSIN HYDROCHLORIDE [Suspect]
     Active Substance: TAMSULOSIN HYDROCHLORIDE
     Indication: Prostatomegaly
     Dosage: 0.4 MG, QD
  47. TAMSULOSIN HYDROCHLORIDE [Suspect]
     Active Substance: TAMSULOSIN HYDROCHLORIDE
     Indication: Benign prostatic hyperplasia
     Dosage: 0.4 MG, QD
  48. TAMSULOSIN HYDROCHLORIDE [Suspect]
     Active Substance: TAMSULOSIN HYDROCHLORIDE
     Dosage: 0.4 MG, QD
  49. TAMSULOSIN HYDROCHLORIDE [Suspect]
     Active Substance: TAMSULOSIN HYDROCHLORIDE
     Dosage: 0.4 MG, QD
  50. TAMSULOSIN HYDROCHLORIDE [Suspect]
     Active Substance: TAMSULOSIN HYDROCHLORIDE
     Dosage: 0.4 MG, QD
  51. TAMSULOSIN HYDROCHLORIDE [Suspect]
     Active Substance: TAMSULOSIN HYDROCHLORIDE
     Dosage: 0.4 MG, QD
  52. TAMSULOSIN HYDROCHLORIDE [Suspect]
     Active Substance: TAMSULOSIN HYDROCHLORIDE
     Dosage: 0.4 MG, QD
  53. TAMSULOSIN HYDROCHLORIDE [Suspect]
     Active Substance: TAMSULOSIN HYDROCHLORIDE
     Dosage: 0.4 MG, QD
  54. TAMSULOSIN HYDROCHLORIDE [Suspect]
     Active Substance: TAMSULOSIN HYDROCHLORIDE
     Dosage: 0.4 MG, QD
  55. TAMSULOSIN HYDROCHLORIDE [Suspect]
     Active Substance: TAMSULOSIN HYDROCHLORIDE
     Dosage: 0.4 MG, QD
  56. TAMSULOSIN HYDROCHLORIDE [Suspect]
     Active Substance: TAMSULOSIN HYDROCHLORIDE
     Dosage: 0.4 MG, QD
  57. ZOLPIDEM [Concomitant]
     Active Substance: ZOLPIDEM TARTRATE
     Indication: Product used for unknown indication
     Dosage: 10 MG, ONCE/SINGLE
  58. ZOLPIDEM [Concomitant]
     Active Substance: ZOLPIDEM TARTRATE
     Dosage: 10 MG, ONCE/SINGLE
  59. ZOLPIDEM [Concomitant]
     Active Substance: ZOLPIDEM TARTRATE
     Dosage: 10 MG, ONCE/SINGLE
  60. ZOLPIDEM [Concomitant]
     Active Substance: ZOLPIDEM TARTRATE
     Dosage: 10 MG, ONCE/SINGLE
  61. ZOLPIDEM [Concomitant]
     Active Substance: ZOLPIDEM TARTRATE
  62. ZOLPIDEM [Concomitant]
     Active Substance: ZOLPIDEM TARTRATE
     Route: 065
  63. ZOLPIDEM [Concomitant]
     Active Substance: ZOLPIDEM TARTRATE
  64. ZOLPIDEM [Concomitant]
     Active Substance: ZOLPIDEM TARTRATE
     Route: 065
  65. SODIUM BICARBONATE [Concomitant]
     Active Substance: SODIUM BICARBONATE
     Indication: Prophylaxis
     Dosage: 1 G, TID
  66. SODIUM BICARBONATE [Concomitant]
     Active Substance: SODIUM BICARBONATE
     Indication: Prophylaxis against dehydration
     Dosage: 1 G, TID
  67. SODIUM BICARBONATE [Concomitant]
     Active Substance: SODIUM BICARBONATE
     Indication: Product used for unknown indication
     Dosage: 1 G, TID
  68. SODIUM BICARBONATE [Concomitant]
     Active Substance: SODIUM BICARBONATE
     Dosage: 1 G, TID
  69. SODIUM BICARBONATE [Concomitant]
     Active Substance: SODIUM BICARBONATE
     Dosage: UNK
     Route: 065
  70. SODIUM BICARBONATE [Concomitant]
     Active Substance: SODIUM BICARBONATE
     Dosage: UNK
  71. SODIUM BICARBONATE [Concomitant]
     Active Substance: SODIUM BICARBONATE
     Dosage: UNK
     Route: 065
  72. SODIUM BICARBONATE [Concomitant]
     Active Substance: SODIUM BICARBONATE
     Dosage: UNK
  73. SODIUM BICARBONATE [Concomitant]
     Active Substance: SODIUM BICARBONATE
     Dosage: 1 G
  74. SODIUM BICARBONATE [Concomitant]
     Active Substance: SODIUM BICARBONATE
     Dosage: 1 G
  75. SODIUM BICARBONATE [Concomitant]
     Active Substance: SODIUM BICARBONATE
     Dosage: 1 G
  76. SODIUM BICARBONATE [Concomitant]
     Active Substance: SODIUM BICARBONATE
     Dosage: 1 G
  77. PANTOPRAZOLE SODIUM [Suspect]
     Active Substance: PANTOPRAZOLE SODIUM
     Indication: Gastric ulcer
     Dosage: 40 MG, QD
  78. PANTOPRAZOLE SODIUM [Suspect]
     Active Substance: PANTOPRAZOLE SODIUM
     Dosage: 40 MG, QD
  79. PANTOPRAZOLE SODIUM [Suspect]
     Active Substance: PANTOPRAZOLE SODIUM
     Dosage: 40 MG, QD
  80. PANTOPRAZOLE SODIUM [Suspect]
     Active Substance: PANTOPRAZOLE SODIUM
     Dosage: 40 MG, QD
  81. SIMVASTATIN [Suspect]
     Active Substance: SIMVASTATIN
     Indication: Hypercholesterolaemia
     Dosage: 20 MG
  82. SIMVASTATIN [Suspect]
     Active Substance: SIMVASTATIN
     Dosage: 20 MG
  83. SIMVASTATIN [Suspect]
     Active Substance: SIMVASTATIN
     Dosage: 20 MG
  84. SIMVASTATIN [Suspect]
     Active Substance: SIMVASTATIN
     Dosage: 20 MG
  85. SIMVASTATIN [Suspect]
     Active Substance: SIMVASTATIN
     Dosage: 20 MG, QD
  86. SIMVASTATIN [Suspect]
     Active Substance: SIMVASTATIN
     Dosage: 20 MG, QD
  87. SIMVASTATIN [Suspect]
     Active Substance: SIMVASTATIN
     Dosage: 20 MG, QD
  88. SIMVASTATIN [Suspect]
     Active Substance: SIMVASTATIN
     Dosage: 20 MG, QD
  89. SACUBITRIL\VALSARTAN [Suspect]
     Active Substance: SACUBITRIL\VALSARTAN
     Indication: Product used for unknown indication
     Dosage: 1 MG, QD(0.5 MG, BID)
  90. SACUBITRIL\VALSARTAN [Suspect]
     Active Substance: SACUBITRIL\VALSARTAN
     Dosage: 1 MG, QD(0.5 MG, BID)
  91. CORDARONE [Suspect]
     Active Substance: AMIODARONE HYDROCHLORIDE
     Indication: Atrial fibrillation
     Dosage: 200 MG
  92. CORDARONE [Suspect]
     Active Substance: AMIODARONE HYDROCHLORIDE
     Dosage: 200 MG
  93. CORDARONE [Suspect]
     Active Substance: AMIODARONE HYDROCHLORIDE
     Dosage: 200 MG
  94. CORDARONE [Suspect]
     Active Substance: AMIODARONE HYDROCHLORIDE
     Dosage: 200 MG
  95. BUMETANIDE [Suspect]
     Active Substance: BUMETANIDE
     Indication: Cardiac failure
     Dosage: 1 MG(1 MG, QOD EVERY 2 DAYS)
  96. BUMETANIDE [Suspect]
     Active Substance: BUMETANIDE
     Indication: Cardiac failure
     Dosage: 1 MG(1 MG, QOD EVERY 2 DAYS)
  97. BUMETANIDE [Suspect]
     Active Substance: BUMETANIDE
     Dosage: 1 MG(1 MG, QOD EVERY 2 DAYS)
  98. BUMETANIDE [Suspect]
     Active Substance: BUMETANIDE
     Dosage: 1 MG(1 MG, QOD EVERY 2 DAYS)
  99. BUMETANIDE [Suspect]
     Active Substance: BUMETANIDE
     Dosage: 2 MG, QD
  100. BUMETANIDE [Suspect]
     Active Substance: BUMETANIDE
     Dosage: 2 MG, QD
  101. BUMETANIDE [Suspect]
     Active Substance: BUMETANIDE
     Dosage: 2 MG, QD
  102. BUMETANIDE [Suspect]
     Active Substance: BUMETANIDE
     Dosage: 2 MG, QD
  103. BUMETANIDE [Suspect]
     Active Substance: BUMETANIDE
     Dosage: 1 MG, QD
  104. BUMETANIDE [Suspect]
     Active Substance: BUMETANIDE
     Dosage: 1 MG, QD
  105. BUMETANIDE [Suspect]
     Active Substance: BUMETANIDE
     Dosage: 1 MG, QD
  106. BUMETANIDE [Suspect]
     Active Substance: BUMETANIDE
     Dosage: 1 MG, QD
  107. BUMETANIDE [Suspect]
     Active Substance: BUMETANIDE
     Dosage: 1 MG, BID
  108. BUMETANIDE [Suspect]
     Active Substance: BUMETANIDE
     Dosage: 1 MG, BID
  109. BUMETANIDE [Suspect]
     Active Substance: BUMETANIDE
     Dosage: 1 MG, BID
  110. BUMETANIDE [Suspect]
     Active Substance: BUMETANIDE
     Dosage: 1 MG, BID
  111. BISOPROLOL [Suspect]
     Active Substance: BISOPROLOL\BISOPROLOL FUMARATE
     Indication: Hypertension
     Dosage: 2.5 MG, QD
  112. BISOPROLOL [Suspect]
     Active Substance: BISOPROLOL\BISOPROLOL FUMARATE
     Dosage: 2.5 MG, QD
  113. BISOPROLOL [Suspect]
     Active Substance: BISOPROLOL\BISOPROLOL FUMARATE
     Dosage: 2.5 MG, QD
  114. BISOPROLOL [Suspect]
     Active Substance: BISOPROLOL\BISOPROLOL FUMARATE
     Dosage: 2.5 MG, QD
  115. EDOXABAN TOSYLATE [Suspect]
     Active Substance: EDOXABAN TOSYLATE
     Indication: Thrombosis prophylaxis
     Dosage: 30 MG, QD
  116. EDOXABAN TOSYLATE [Suspect]
     Active Substance: EDOXABAN TOSYLATE
     Dosage: 30 MG, QD
  117. EDOXABAN TOSYLATE [Suspect]
     Active Substance: EDOXABAN TOSYLATE
     Dosage: 30 MG, QD
  118. EDOXABAN TOSYLATE [Suspect]
     Active Substance: EDOXABAN TOSYLATE
     Dosage: 30 MG, QD
  119. EDOXABAN TOSYLATE [Suspect]
     Active Substance: EDOXABAN TOSYLATE
     Dosage: 30 MG, QD
  120. EDOXABAN TOSYLATE [Suspect]
     Active Substance: EDOXABAN TOSYLATE
     Dosage: 30 MG, QD
  121. EDOXABAN TOSYLATE [Suspect]
     Active Substance: EDOXABAN TOSYLATE
     Dosage: 30 MG, QD
  122. EDOXABAN TOSYLATE [Suspect]
     Active Substance: EDOXABAN TOSYLATE
     Dosage: 30 MG, QD
  123. EDOXABAN TOSYLATE [Suspect]
     Active Substance: EDOXABAN TOSYLATE
     Dosage: UNK
  124. EDOXABAN TOSYLATE [Suspect]
     Active Substance: EDOXABAN TOSYLATE
     Dosage: UNK
  125. EDOXABAN TOSYLATE [Suspect]
     Active Substance: EDOXABAN TOSYLATE
     Dosage: UNK
  126. EDOXABAN TOSYLATE [Suspect]
     Active Substance: EDOXABAN TOSYLATE
     Dosage: UNK
  127. SPIRONOLACTONE [Suspect]
     Active Substance: SPIRONOLACTONE
     Indication: Cardiac failure
     Dosage: 25 MG
  128. SPIRONOLACTONE [Suspect]
     Active Substance: SPIRONOLACTONE
     Indication: Cardiac failure acute
     Dosage: 25 MG
  129. SPIRONOLACTONE [Suspect]
     Active Substance: SPIRONOLACTONE
     Indication: Product used for unknown indication
     Dosage: 25 MG
  130. SPIRONOLACTONE [Suspect]
     Active Substance: SPIRONOLACTONE
     Indication: Cardiac failure acute
     Dosage: 25 MG
  131. SPIRONOLACTONE [Suspect]
     Active Substance: SPIRONOLACTONE
     Dosage: 25 MG, QD
  132. SPIRONOLACTONE [Suspect]
     Active Substance: SPIRONOLACTONE
     Dosage: 25 MG, QD
  133. SPIRONOLACTONE [Suspect]
     Active Substance: SPIRONOLACTONE
     Dosage: 25 MG, QD
  134. SPIRONOLACTONE [Suspect]
     Active Substance: SPIRONOLACTONE
     Dosage: 25 MG, QD
  135. SPIRONOLACTONE [Suspect]
     Active Substance: SPIRONOLACTONE
     Dosage: 25 MG, QD
  136. SPIRONOLACTONE [Suspect]
     Active Substance: SPIRONOLACTONE
     Dosage: 25 MG, QD
  137. SPIRONOLACTONE [Suspect]
     Active Substance: SPIRONOLACTONE
     Dosage: 25 MG, QD
  138. SPIRONOLACTONE [Suspect]
     Active Substance: SPIRONOLACTONE
     Dosage: 25 MG, QD
  139. SPIRONOLACTONE [Suspect]
     Active Substance: SPIRONOLACTONE
     Dosage: 25 MG, QD
  140. SPIRONOLACTONE [Suspect]
     Active Substance: SPIRONOLACTONE
     Dosage: 25 MG, QD
  141. SPIRONOLACTONE [Suspect]
     Active Substance: SPIRONOLACTONE
     Dosage: 25 MG, QD
  142. SPIRONOLACTONE [Suspect]
     Active Substance: SPIRONOLACTONE
     Dosage: 25 MG, QD
  143. SPIRONOLACTONE [Suspect]
     Active Substance: SPIRONOLACTONE
     Dosage: 25 MG, QD
  144. SPIRONOLACTONE [Suspect]
     Active Substance: SPIRONOLACTONE
     Dosage: 25 MG, QD
  145. SPIRONOLACTONE [Suspect]
     Active Substance: SPIRONOLACTONE
     Dosage: 25 MG, QD
  146. SPIRONOLACTONE [Suspect]
     Active Substance: SPIRONOLACTONE
     Dosage: 25 MG, QD
  147. SPIRONOLACTONE [Suspect]
     Active Substance: SPIRONOLACTONE
     Dosage: ROUTE OF ADMIN (FREE TEXT): INTRAVENOUS (NOT OTHERWISE SPECIFIED)
  148. SPIRONOLACTONE [Suspect]
     Active Substance: SPIRONOLACTONE
     Dosage: ROUTE OF ADMIN (FREE TEXT): INTRAVENOUS (NOT OTHERWISE SPECIFIED)
  149. SPIRONOLACTONE [Suspect]
     Active Substance: SPIRONOLACTONE
     Dosage: ROUTE OF ADMIN (FREE TEXT): INTRAVENOUS (NOT OTHERWISE SPECIFIED)
  150. SPIRONOLACTONE [Suspect]
     Active Substance: SPIRONOLACTONE
     Dosage: ROUTE OF ADMIN (FREE TEXT): INTRAVENOUS (NOT OTHERWISE SPECIFIED)
  151. ACORAMIDIS [Concomitant]
     Active Substance: ACORAMIDIS
     Indication: Cardiac amyloidosis
     Dosage: UNK UNK, UNKNOWN FREQ.( LAST DOSE PRIOR TO THE EVENT ONSET WAS ON 30-SEP-2023)
  152. ACORAMIDIS [Concomitant]
     Active Substance: ACORAMIDIS
     Dosage: UNK UNK, UNKNOWN FREQ.( LAST DOSE PRIOR TO THE EVENT ONSET WAS ON 30-SEP-2023)
     Route: 065
  153. ACORAMIDIS [Concomitant]
     Active Substance: ACORAMIDIS
     Dosage: UNK UNK, UNKNOWN FREQ.( LAST DOSE PRIOR TO THE EVENT ONSET WAS ON 30-SEP-2023)
  154. ACORAMIDIS [Concomitant]
     Active Substance: ACORAMIDIS
     Dosage: UNK UNK, UNKNOWN FREQ.( LAST DOSE PRIOR TO THE EVENT ONSET WAS ON 30-SEP-2023)
     Route: 065
  155. ACORAMIDIS [Concomitant]
     Active Substance: ACORAMIDIS
     Dosage: UNK UNK, UNKNOWN FREQ.( LAST DOSE PRIOR TO THE EVENT ONSET WAS ON 30-SEP-2023)
  156. ACORAMIDIS [Concomitant]
     Active Substance: ACORAMIDIS
     Dosage: UNK UNK, UNKNOWN FREQ.( LAST DOSE PRIOR TO THE EVENT ONSET WAS ON 30-SEP-2023)
  157. ACORAMIDIS [Concomitant]
     Active Substance: ACORAMIDIS
     Dosage: UNK UNK, UNKNOWN FREQ.( LAST DOSE PRIOR TO THE EVENT ONSET WAS ON 30-SEP-2023)
     Route: 065
  158. ACORAMIDIS [Concomitant]
     Active Substance: ACORAMIDIS
     Dosage: UNK UNK, UNKNOWN FREQ.( LAST DOSE PRIOR TO THE EVENT ONSET WAS ON 30-SEP-2023)
     Route: 065
  159. ACORAMIDIS [Concomitant]
     Active Substance: ACORAMIDIS
     Dosage: 800.000MG QD
  160. ACORAMIDIS [Concomitant]
     Active Substance: ACORAMIDIS
     Dosage: 800.000MG QD
  161. ACORAMIDIS [Concomitant]
     Active Substance: ACORAMIDIS
     Dosage: 800.000MG QD
  162. ACORAMIDIS [Concomitant]
     Active Substance: ACORAMIDIS
     Dosage: 800.000MG QD
  163. ACORAMIDIS [Concomitant]
     Active Substance: ACORAMIDIS
     Dosage: 800.000MG QD
  164. ACORAMIDIS [Concomitant]
     Active Substance: ACORAMIDIS
     Dosage: 800.000MG QD
  165. ACORAMIDIS [Concomitant]
     Active Substance: ACORAMIDIS
     Dosage: 800.000MG QD
  166. ACORAMIDIS [Concomitant]
     Active Substance: ACORAMIDIS
     Dosage: 800.000MG QD
  167. TAMSULOSIN [Concomitant]
     Active Substance: TAMSULOSIN
     Indication: Product used for unknown indication
     Dosage: UNK
  168. TAMSULOSIN [Concomitant]
     Active Substance: TAMSULOSIN
     Dosage: UNK
  169. FENOTEROL [Concomitant]
     Active Substance: FENOTEROL
     Indication: Pneumonia
     Dosage: 8 DF, QD (2 DF, OTHER (2 DOSAGE FORM QID))
     Route: 065
  170. FENOTEROL [Concomitant]
     Active Substance: FENOTEROL
     Indication: Product used for unknown indication
     Dosage: 8 DF, QD (2 DF, OTHER (2 DOSAGE FORM QID))
  171. FENOTEROL [Concomitant]
     Active Substance: FENOTEROL
     Dosage: 8 DF, QD (2 DF, OTHER (2 DOSAGE FORM QID))
     Route: 065
  172. FENOTEROL [Concomitant]
     Active Substance: FENOTEROL
     Dosage: 8 DF, QD (2 DF, OTHER (2 DOSAGE FORM QID))
  173. FENOTEROL [Concomitant]
     Active Substance: FENOTEROL
     Dosage: 2 DF, OTHER (2 DOSAGE FORM QID)
     Route: 065
  174. FENOTEROL [Concomitant]
     Active Substance: FENOTEROL
     Dosage: 2 DF, OTHER (2 DOSAGE FORM QID)
  175. FENOTEROL [Concomitant]
     Active Substance: FENOTEROL
     Dosage: 2 DF, OTHER (2 DOSAGE FORM QID)
     Route: 065
  176. FENOTEROL [Concomitant]
     Active Substance: FENOTEROL
     Dosage: 2 DF, OTHER (2 DOSAGE FORM QID)
  177. 1-ALPHA LEO [Concomitant]
     Indication: Vitamin D deficiency
     Dosage: UNK
     Route: 065
  178. 1-ALPHA LEO [Concomitant]
     Dosage: UNK
  179. 1-ALPHA LEO [Concomitant]
     Dosage: UNK
     Route: 065
  180. 1-ALPHA LEO [Concomitant]
     Dosage: UNK
  181. 1-ALPHA LEO [Concomitant]
     Dosage: 0.25 ?G, 4 TIMES DAILY (0.25 UG QD PO)
  182. 1-ALPHA LEO [Concomitant]
     Dosage: 0.25 ?G, 4 TIMES DAILY (0.25 UG QD PO)
  183. 1-ALPHA LEO [Concomitant]
     Dosage: 0.25 ?G, 4 TIMES DAILY (0.25 UG QD PO)
  184. 1-ALPHA LEO [Concomitant]
     Dosage: 0.25 ?G, 4 TIMES DAILY (0.25 UG QD PO)
  185. BISOPROLOL [Concomitant]
     Active Substance: BISOPROLOL\BISOPROLOL FUMARATE
     Indication: Hypertension
     Dosage: 2.5 MG, Q6H
  186. BISOPROLOL [Concomitant]
     Active Substance: BISOPROLOL\BISOPROLOL FUMARATE
     Dosage: 2.5 MG, Q6H
  187. BISOPROLOL [Concomitant]
     Active Substance: BISOPROLOL\BISOPROLOL FUMARATE
     Dosage: 2.5 MG, Q6H
  188. BISOPROLOL [Concomitant]
     Active Substance: BISOPROLOL\BISOPROLOL FUMARATE
     Dosage: 2.5 MG, Q6H
  189. BISOPROLOL [Concomitant]
     Active Substance: BISOPROLOL\BISOPROLOL FUMARATE
     Dosage: 2.5 MG, QD
  190. BISOPROLOL [Concomitant]
     Active Substance: BISOPROLOL\BISOPROLOL FUMARATE
     Dosage: 2.5 MG, QD
  191. BISOPROLOL [Concomitant]
     Active Substance: BISOPROLOL\BISOPROLOL FUMARATE
     Dosage: 2.5 MG, QD
  192. BISOPROLOL [Concomitant]
     Active Substance: BISOPROLOL\BISOPROLOL FUMARATE
     Dosage: 2.5 MG, QD
  193. EDOXABAN TOSYLATE [Suspect]
     Active Substance: EDOXABAN TOSYLATE
     Indication: Thrombosis prophylaxis
     Dosage: 30 MG
  194. EDOXABAN TOSYLATE [Suspect]
     Active Substance: EDOXABAN TOSYLATE
     Dosage: 30 MG
  195. EDOXABAN TOSYLATE [Suspect]
     Active Substance: EDOXABAN TOSYLATE
     Dosage: 30 MG
  196. EDOXABAN TOSYLATE [Suspect]
     Active Substance: EDOXABAN TOSYLATE
     Dosage: 30 MG
  197. EDOXABAN TOSYLATE [Suspect]
     Active Substance: EDOXABAN TOSYLATE
     Dosage: 30 MG, QD
  198. EDOXABAN TOSYLATE [Suspect]
     Active Substance: EDOXABAN TOSYLATE
     Dosage: 30 MG, QD
  199. EDOXABAN TOSYLATE [Suspect]
     Active Substance: EDOXABAN TOSYLATE
     Dosage: 30 MG, QD
  200. EDOXABAN TOSYLATE [Suspect]
     Active Substance: EDOXABAN TOSYLATE
     Dosage: 30 MG, QD
  201. ALFACALCIDOL [Concomitant]
     Active Substance: ALFACALCIDOL
     Indication: Vitamin D deficiency
     Dosage: 0.25 ?G, 4 TIMES DAILY (0.25 UG QD PO)
  202. ALFACALCIDOL [Concomitant]
     Active Substance: ALFACALCIDOL
     Dosage: 0.25 ?G, 4 TIMES DAILY (0.25 UG QD PO)
  203. ALFACALCIDOL [Concomitant]
     Active Substance: ALFACALCIDOL
     Dosage: 0.25 ?G, 4 TIMES DAILY (0.25 UG QD PO)
  204. ALFACALCIDOL [Concomitant]
     Active Substance: ALFACALCIDOL
     Dosage: 0.25 ?G, 4 TIMES DAILY (0.25 UG QD PO)
  205. SIMVASTATIN [Suspect]
     Active Substance: SIMVASTATIN
     Indication: Hypercholesterolaemia
     Dosage: 20 MG
  206. SIMVASTATIN [Suspect]
     Active Substance: SIMVASTATIN
     Dosage: 20 MG
  207. SIMVASTATIN [Suspect]
     Active Substance: SIMVASTATIN
     Dosage: 20 MG
  208. SIMVASTATIN [Suspect]
     Active Substance: SIMVASTATIN
     Dosage: 20 MG
  209. SIMVASTATIN [Suspect]
     Active Substance: SIMVASTATIN
     Dosage: 20 MG, Q6H
  210. SIMVASTATIN [Suspect]
     Active Substance: SIMVASTATIN
     Dosage: 20 MG, Q6H
  211. SIMVASTATIN [Suspect]
     Active Substance: SIMVASTATIN
     Dosage: 20 MG, Q6H
  212. SIMVASTATIN [Suspect]
     Active Substance: SIMVASTATIN
     Dosage: 20 MG, Q6H
  213. ULTRA K [Concomitant]
     Indication: Product used for unknown indication
     Dosage: 15.000ML
  214. ULTRA K [Concomitant]
     Dosage: 15.000ML
  215. ULTRA K [Concomitant]
     Dosage: 15.000ML
  216. ULTRA K [Concomitant]
     Dosage: 15.000ML
  217. MORPHINE [Concomitant]
     Active Substance: MORPHINE
     Indication: Product used for unknown indication
     Dosage: 5.000MG
  218. MORPHINE [Concomitant]
     Active Substance: MORPHINE
     Dosage: 5.000MG
  219. MORPHINE [Concomitant]
     Active Substance: MORPHINE
     Dosage: 5.000MG
  220. MORPHINE [Concomitant]
     Active Substance: MORPHINE
     Dosage: 5.000MG
  221. MORPHINE [Concomitant]
     Active Substance: MORPHINE
     Dosage: 5.000MG
  222. MORPHINE [Concomitant]
     Active Substance: MORPHINE
     Dosage: 5.000MG
  223. MORPHINE [Concomitant]
     Active Substance: MORPHINE
     Dosage: 5.000MG
  224. MORPHINE [Concomitant]
     Active Substance: MORPHINE
     Dosage: 5.000MG
  225. TAMSULOSIN HYDROCHLORIDE [Concomitant]
     Active Substance: TAMSULOSIN HYDROCHLORIDE
     Indication: Product used for unknown indication
     Dosage: UNK
     Route: 065
  226. TAMSULOSIN HYDROCHLORIDE [Concomitant]
     Active Substance: TAMSULOSIN HYDROCHLORIDE
     Dosage: UNK
  227. TAMSULOSIN HYDROCHLORIDE [Concomitant]
     Active Substance: TAMSULOSIN HYDROCHLORIDE
     Dosage: UNK
     Route: 065
  228. TAMSULOSIN HYDROCHLORIDE [Concomitant]
     Active Substance: TAMSULOSIN HYDROCHLORIDE
     Dosage: UNK
  229. PIPERACILLIN SODIUM\TAZOBACTAM SODIUM [Concomitant]
     Active Substance: PIPERACILLIN SODIUM\TAZOBACTAM SODIUM
     Indication: Pneumonia
     Dosage: ROUTE OF ADMIN (FREE TEXT): INTRAVENOUS (NOT OTHERWISE SPECIFIED)
  230. PIPERACILLIN SODIUM\TAZOBACTAM SODIUM [Concomitant]
     Active Substance: PIPERACILLIN SODIUM\TAZOBACTAM SODIUM
     Dosage: ROUTE OF ADMIN (FREE TEXT): INTRAVENOUS (NOT OTHERWISE SPECIFIED)
  231. SCOPOLAMINE HYDROBROMIDE [Concomitant]
     Active Substance: SCOPOLAMINE HYDROBROMIDE
     Indication: Product used for unknown indication
     Dosage: 7.500ML
  232. SCOPOLAMINE HYDROBROMIDE [Concomitant]
     Active Substance: SCOPOLAMINE HYDROBROMIDE
     Dosage: 7.500ML
  233. SCOPOLAMINE HYDROBROMIDE [Concomitant]
     Active Substance: SCOPOLAMINE HYDROBROMIDE
     Dosage: 7.500ML
  234. SCOPOLAMINE HYDROBROMIDE [Concomitant]
     Active Substance: SCOPOLAMINE HYDROBROMIDE
     Dosage: 7.500ML
  235. ACETAMINOPHEN [Concomitant]
     Active Substance: ACETAMINOPHEN
     Indication: Product used for unknown indication
     Dosage: 1 G AS NEEDED (PRN) ROUTE OF ADMIN (FREE TEXT): INTRAVENOUS (NOT OTHERWISE SPECIFIED)
  236. ACETAMINOPHEN [Concomitant]
     Active Substance: ACETAMINOPHEN
     Dosage: 1 G AS NEEDED (PRN) ROUTE OF ADMIN (FREE TEXT): INTRAVENOUS (NOT OTHERWISE SPECIFIED)
  237. ACETAMINOPHEN [Concomitant]
     Active Substance: ACETAMINOPHEN
     Dosage: 500 MG ONCE PO
  238. ACETAMINOPHEN [Concomitant]
     Active Substance: ACETAMINOPHEN
     Dosage: 500 MG ONCE PO
  239. ACETAMINOPHEN [Concomitant]
     Active Substance: ACETAMINOPHEN
     Dosage: 500 MG ONCE PO
  240. ACETAMINOPHEN [Concomitant]
     Active Substance: ACETAMINOPHEN
     Dosage: 500 MG ONCE PO

REACTIONS (13)
  - Cardiac failure [Recovered/Resolved]
  - Acute kidney injury [Recovered/Resolved]
  - Presyncope [Unknown]
  - Dizziness [Unknown]
  - Cardiomegaly [Unknown]
  - Dehydration [Recovered/Resolved]
  - Hypotension [Unknown]
  - Loss of consciousness [Unknown]
  - Atrioventricular block complete [Recovered/Resolved]
  - Pneumonia [Recovered/Resolved]
  - Atrial fibrillation [Recovered/Resolved]
  - Cardiac failure [Recovered/Resolved]
  - Acute kidney injury [Recovered/Resolved]
